FAERS Safety Report 16568840 (Version 1)
Quarter: 2019Q3

REPORT INFORMATION
  Report Type: Spontaneous
  Country: ES (occurrence: ES)
  Receive Date: 20190713
  Receipt Date: 20190713
  Transmission Date: 20191004
  Serious: Yes (Other)
  Sender: FDA-Public Use
  Company Number: ES-JNJFOC-20190319603

PATIENT
  Age: 53 Year
  Sex: Male

DRUGS (18)
  1. DICLOFENAC [Suspect]
     Active Substance: DICLOFENAC
     Route: 065
  2. DIPYRONE [Suspect]
     Active Substance: DIPYRONE
     Route: 065
  3. ASPIRIN. [Suspect]
     Active Substance: ASPIRIN
     Indication: PRODUCT USED FOR UNKNOWN INDICATION
     Route: 048
  4. DIPYRONE [Suspect]
     Active Substance: DIPYRONE
     Indication: DRUG PROVOCATION TEST
     Route: 065
  5. DIPYRONE [Suspect]
     Active Substance: DIPYRONE
     Indication: PRODUCT USED FOR UNKNOWN INDICATION
     Route: 065
  6. DIPYRONE [Suspect]
     Active Substance: DIPYRONE
     Route: 065
  7. IBUPROFEN. [Suspect]
     Active Substance: IBUPROFEN
     Indication: PRODUCT USED FOR UNKNOWN INDICATION
     Route: 065
  8. IBUPROFEN. [Suspect]
     Active Substance: IBUPROFEN
     Route: 065
  9. ASPIRIN. [Suspect]
     Active Substance: ASPIRIN
     Indication: DRUG PROVOCATION TEST
     Route: 048
  10. DIPYRONE [Suspect]
     Active Substance: DIPYRONE
     Route: 065
  11. ASPIRIN. [Suspect]
     Active Substance: ASPIRIN
     Route: 048
  12. DICLOFENAC [Suspect]
     Active Substance: DICLOFENAC
     Indication: PRODUCT USED FOR UNKNOWN INDICATION
     Route: 065
  13. IBUPROFEN. [Suspect]
     Active Substance: IBUPROFEN
     Route: 065
  14. IBUPROFEN. [Suspect]
     Active Substance: IBUPROFEN
     Route: 065
  15. DICLOFENAC [Suspect]
     Active Substance: DICLOFENAC
     Indication: DRUG PROVOCATION TEST
     Dosage: START PERIOD: 1 HOUR
     Route: 065
  16. IBUPROFEN. [Suspect]
     Active Substance: IBUPROFEN
     Indication: DRUG PROVOCATION TEST
     Route: 065
  17. ASPIRIN. [Suspect]
     Active Substance: ASPIRIN
     Route: 048
  18. DIPYRONE [Suspect]
     Active Substance: DIPYRONE
     Route: 065

REACTIONS (4)
  - Angioedema [Unknown]
  - Urticaria [Unknown]
  - Product use in unapproved indication [Unknown]
  - Off label use [Unknown]
